FAERS Safety Report 4789659-7 (Version None)
Quarter: 2005Q4

REPORT INFORMATION
  Report Type: 
  Country: None (occurrence: None)
  Receive Date: 20051004
  Receipt Date: 20050921
  Transmission Date: 20060501
  Serious: Yes (Other)
  Sender: FDA-Public Use
  Company Number: 2005132883

PATIENT
  Sex: Female
  Weight: 52.1637 kg

DRUGS (11)
  1. CORTEF [Suspect]
     Indication: BLOOD CORTICOTROPHIN DECREASED
     Dosage: 15 MG (1 IN 1 D), ORAL
     Route: 048
     Dates: start: 20020801, end: 20041101
  2. BOTOX (BOTULINUM TOXIN TYPE A) [Suspect]
     Indication: MIGRAINE
     Dates: start: 20020301, end: 20050501
  3. MAXZIDE [Suspect]
     Indication: BREAST OEDEMA
     Dates: end: 20030101
  4. PREVACID [Concomitant]
  5. BECONASE (BECLOMETASONE DIPROPIONATE) [Concomitant]
  6. BENADRYL [Concomitant]
  7. VENTOLIN [Concomitant]
  8. FLOVENT [Concomitant]
  9. PULMICORT [Concomitant]
  10. TYLENOL [Concomitant]
  11. MUSCLE RELAXANTS (MUSCLE RELAXANTS) [Concomitant]

REACTIONS (37)
  - ACNE [None]
  - ALOPECIA [None]
  - ANOREXIA [None]
  - BLOOD ALDOSTERONE ABNORMAL [None]
  - BLOOD CORTICOTROPHIN DECREASED [None]
  - BLOOD POTASSIUM DECREASED [None]
  - BREAST CYST [None]
  - BREAST MASS [None]
  - BREAST PAIN [None]
  - CONDITION AGGRAVATED [None]
  - DECREASED APPETITE [None]
  - DIFFICULTY IN WALKING [None]
  - DRY EYE [None]
  - DYSMENORRHOEA [None]
  - DYSPEPSIA [None]
  - EYE IRRITATION [None]
  - FATIGUE [None]
  - FLUID RETENTION [None]
  - HAIR GROWTH ABNORMAL [None]
  - INFLAMMATION [None]
  - MELANOCYTIC NAEVUS [None]
  - MENORRHAGIA [None]
  - MOOD ALTERED [None]
  - MYALGIA [None]
  - NAUSEA [None]
  - OEDEMA PERIPHERAL [None]
  - OLIGOMENORRHOEA [None]
  - ORAL INTAKE REDUCED [None]
  - OVARIAN DISORDER [None]
  - PAIN [None]
  - PAIN IN EXTREMITY [None]
  - PHARYNGOLARYNGEAL PAIN [None]
  - PITTING OEDEMA [None]
  - RENIN ABNORMAL [None]
  - SOMNOLENCE [None]
  - SWELLING FACE [None]
  - WEIGHT DECREASED [None]
